FAERS Safety Report 12552378 (Version 1)
Quarter: 2016Q3

REPORT INFORMATION
  Report Type: Spontaneous
  Country: US (occurrence: US)
  Receive Date: 20160713
  Receipt Date: 20160713
  Transmission Date: 20161109
  Serious: Yes (Hospitalization, Other)
  Sender: FDA-Public Use
  Company Number: US-SUN PHARMACEUTICAL INDUSTRIES LTD-2016US-119851

PATIENT
  Age: 46 Year
  Sex: Male

DRUGS (3)
  1. TUMS [Suspect]
     Active Substance: CALCIUM CARBONATE
     Indication: ABDOMINAL PAIN UPPER
  2. HYDROCHLOROTHIAZIDE. [Suspect]
     Active Substance: HYDROCHLOROTHIAZIDE
     Indication: HYPERTENSION
     Route: 065
  3. TUMS [Suspect]
     Active Substance: CALCIUM CARBONATE
     Indication: CHEST PAIN
     Dosage: 30 DF, DAILY
     Route: 048

REACTIONS (5)
  - Milk-alkali syndrome [Recovering/Resolving]
  - Electrocardiogram ST segment elevation [Recovered/Resolved]
  - Bundle branch block left [Recovered/Resolved]
  - Hypercalcaemia [Unknown]
  - Acute kidney injury [Unknown]
